FAERS Safety Report 6503011-5 (Version None)
Quarter: 2009Q4

REPORT INFORMATION
  Report Type: 
  Country: None (occurrence: None)
  Receive Date: 20091201
  Receipt Date: 20090716
  Transmission Date: 20100525
  Serious: Yes (Other)
  Sender: FDA-Public Use
  Company Number: 191623USA

PATIENT
  Sex: Female

DRUGS (1)
  1. AMOXICILLIN AND CLAVULANATE POTASSIUM [Suspect]
     Indication: DENTAL CARE
     Dosage: 500MG/125MG (2 IN 1 D), ORAL
     Route: 048
     Dates: start: 20090227, end: 20090306

REACTIONS (9)
  - ASTHENIA [None]
  - CHILLS [None]
  - CONSTIPATION [None]
  - HEPATITIS [None]
  - MALAISE [None]
  - PRURITUS GENERALISED [None]
  - RASH [None]
  - URINARY TRACT INFECTION [None]
  - URINE COLOUR ABNORMAL [None]
